FAERS Safety Report 10049014 (Version 1)
Quarter: 2014Q1

REPORT INFORMATION
  Report Type: Report from Study
  Country: US (occurrence: US)
  Receive Date: 20140331
  Receipt Date: 20140331
  Transmission Date: 20141002
  Serious: Yes (Hospitalization, Other)
  Sender: FDA-Public Use
  Company Number: US-ABBVIE-14P-163-1215599-00

PATIENT
  Sex: Female
  Weight: 74.46 kg

DRUGS (4)
  1. HUMIRA [Suspect]
     Indication: CROHN^S DISEASE
     Dates: start: 2010, end: 2012
  2. HUMIRA [Suspect]
     Route: 058
     Dates: start: 201401
  3. KLONOPIN [Concomitant]
     Indication: ANXIETY
  4. TRAZODONE [Concomitant]
     Indication: DEPRESSION

REACTIONS (5)
  - Intestinal obstruction [Recovered/Resolved]
  - Surgery [Unknown]
  - Abdominal pain [Recovered/Resolved]
  - Uterine leiomyoma [Recovered/Resolved]
  - Frequent bowel movements [Recovered/Resolved]
